FAERS Safety Report 6721716-8 (Version None)
Quarter: 2010Q2

REPORT INFORMATION
  Report Type: 
  Country: None (occurrence: None)
  Receive Date: 20100512
  Receipt Date: 20100504
  Transmission Date: 20101027
  Serious: Yes (Hospitalization, Other)
  Sender: FDA-Public Use
  Company Number: CH-ASTRAZENECA-2010SE20708

PATIENT
  Age: 75 Year
  Sex: Female

DRUGS (4)
  1. ZESTRIL [Interacting]
     Route: 048
     Dates: start: 20090801, end: 20090921
  2. ZESTRIL [Interacting]
     Route: 048
     Dates: start: 20090929
  3. QUILONORM [Interacting]
     Route: 048
     Dates: start: 19800101, end: 20091016
  4. METFIN [Suspect]
     Route: 048
     Dates: start: 20080101

REACTIONS (2)
  - DRUG INTERACTION [None]
  - PARKINSONISM [None]
